FAERS Safety Report 10913193 (Version 2)
Quarter: 2015Q2

REPORT INFORMATION
  Report Type: Report from Study
  Country: US (occurrence: US)
  Receive Date: 20150313
  Receipt Date: 20150413
  Transmission Date: 20150821
  Serious: Yes (Hospitalization)
  Sender: FDA-Public Use
  Company Number: US-ACTELION-A-US2014-105172

PATIENT
  Age: 39 Year
  Sex: Female

DRUGS (4)
  1. OPSUMIT [Suspect]
     Active Substance: MACITENTAN
     Indication: PULMONARY ARTERIAL HYPERTENSION
     Dosage: 10 MG, QD
     Route: 048
     Dates: start: 20140109
  2. VENTAVIS [Suspect]
     Active Substance: ILOPROST
     Indication: PULMONARY ARTERIAL HYPERTENSION
     Dosage: 5 MCG, 6-9X/DAY
     Route: 055
     Dates: start: 20130913
  3. REVATIO [Concomitant]
     Active Substance: SILDENAFIL CITRATE
  4. MIDODRINE [Suspect]
     Active Substance: MIDODRINE
     Indication: PRODUCT USED FOR UNKNOWN INDICATION
     Route: 065

REACTIONS (18)
  - Lethargy [Unknown]
  - Hypersomnia [Unknown]
  - Fatigue [Unknown]
  - Malaise [Unknown]
  - Drug dose omission [Unknown]
  - Presyncope [Unknown]
  - Eye haemorrhage [Unknown]
  - Asthenia [Unknown]
  - Dizziness [Unknown]
  - Tearfulness [Unknown]
  - Chest pain [Unknown]
  - Hypotension [Unknown]
  - Nasopharyngitis [Unknown]
  - Frustration [Unknown]
  - Chills [Unknown]
  - Tremor [Unknown]
  - Pruritus [Unknown]
  - Bedridden [Unknown]
